FAERS Safety Report 8134651 (Version 3)
Quarter: 2012Q4

REPORT INFORMATION
  Report Type: 
  Country: US (occurrence: US)
  Receive Date: 20110914
  Receipt Date: 20120910
  Transmission Date: 20130627
  Serious: Yes (Hospitalization)
  Sender: FDA-Public Use
  Company Number: US-BIOGENIDEC-2011BI033090

PATIENT
  Age: 76 Year
  Sex: Female

DRUGS (1)
  1. AVONEX [Suspect]
     Indication: MULTIPLE SCLEROSIS
     Route: 030
     Dates: start: 19970401

REACTIONS (4)
  - Muscle spasms [Unknown]
  - Breast prosthesis removal [Unknown]
  - Dysuria [Unknown]
  - Urinary incontinence [Unknown]
